FAERS Safety Report 20393494 (Version 1)
Quarter: 2022Q1

REPORT INFORMATION
  Report Type: Spontaneous
  Country: US (occurrence: US)
  Receive Date: 20220128
  Receipt Date: 20220128
  Transmission Date: 20220423
  Serious: Yes (Other)
  Sender: FDA-Public Use
  Company Number: US-LUPIN PHARMACEUTICALS INC.-2022-01038

PATIENT
  Age: 4 Decade
  Sex: Female

DRUGS (4)
  1. ZOLMITRIPTAN [Suspect]
     Active Substance: ZOLMITRIPTAN
     Indication: Migraine without aura
     Dosage: UNK
  2. NADOLOL [Suspect]
     Active Substance: NADOLOL
     Indication: Migraine without aura
     Dosage: UNK
     Route: 065
  3. RIZATRIPTAN [Suspect]
     Active Substance: RIZATRIPTAN
     Indication: Migraine without aura
     Dosage: UNK
     Route: 065
  4. ERENUMAB [Suspect]
     Active Substance: ERENUMAB
     Indication: Migraine without aura
     Dosage: 140 MILLIGRAM (EVERY 30 DAYS)
     Route: 065

REACTIONS (1)
  - Raynaud^s phenomenon [Recovered/Resolved]
